FAERS Safety Report 7899118-0 (Version None)
Quarter: 2011Q4

REPORT INFORMATION
  Report Type: 
  Country: None (occurrence: None)
  Receive Date: 20111107
  Receipt Date: 20110912
  Transmission Date: 20120403
  Serious: No
  Sender: FDA-Public Use
  Company Number: US-AMGEN-USASP2011042230

PATIENT
  Age: 49 Year
  Sex: Female
  Weight: 60.317 kg

DRUGS (6)
  1. PREDNISONE [Concomitant]
     Indication: RHEUMATOID ARTHRITIS
     Dosage: 5 MG, QD
     Route: 048
     Dates: start: 20021230
  2. ZANAFLEX [Concomitant]
     Indication: MYALGIA
     Dosage: 2 MG, BID, PRN
     Route: 048
     Dates: start: 20061004
  3. BONIVA [Concomitant]
     Indication: OSTEOPOROSIS
     Dosage: 150 MG, QMO
     Route: 048
     Dates: start: 20080723
  4. LORTAB [Concomitant]
     Indication: RHEUMATOID ARTHRITIS
     Dosage: 5 MG, PRN
     Route: 048
     Dates: start: 20021210
  5. ENBREL [Suspect]
     Indication: RHEUMATOID ARTHRITIS
     Dosage: 50 MG, QWK
     Route: 058
     Dates: start: 20070327
  6. MELOXICAM [Concomitant]
     Indication: RHEUMATOID ARTHRITIS
     Dosage: 15 MG, QD
     Route: 048
     Dates: start: 20060509

REACTIONS (2)
  - HYPERSENSITIVITY [None]
  - SINUSITIS [None]
